FAERS Safety Report 6382783-7 (Version None)
Quarter: 2009Q3

REPORT INFORMATION
  Report Type: 
  Country: None (occurrence: None)
  Receive Date: 20090928
  Receipt Date: 20090928
  Transmission Date: 20100115
  Serious: Yes (Other)
  Sender: FDA-Public Use
  Company Number: None

PATIENT
  Sex: Female
  Weight: 68.0396 kg

DRUGS (2)
  1. CYMBALTA [Suspect]
     Indication: FACE INJURY
     Dosage: 20 MG DAILY PO
     Route: 048
     Dates: start: 20090101, end: 20090920
  2. CYMBALTA [Suspect]
     Indication: NEURALGIA
     Dosage: 20 MG DAILY PO
     Route: 048
     Dates: start: 20090101, end: 20090920

REACTIONS (7)
  - CHEST DISCOMFORT [None]
  - COUGH [None]
  - DIZZINESS [None]
  - DRY SKIN [None]
  - HALLUCINATION, AUDITORY [None]
  - ILLUSION [None]
  - INSOMNIA [None]
